FAERS Safety Report 9663847 (Version 2)
Quarter: 2013Q4

REPORT INFORMATION
  Report Type: Spontaneous
  Country: US (occurrence: US)
  Receive Date: 20131101
  Receipt Date: 20131107
  Transmission Date: 20140711
  Serious: No
  Sender: FDA-Public Use
  Company Number: US-PFIZER INC-2013312820

PATIENT
  Age: 57 Year
  Sex: Female
  Weight: 89.8 kg

DRUGS (2)
  1. LYRICA [Suspect]
     Indication: FIBROMYALGIA
     Dosage: 75 MG, 3X/DAY
     Dates: end: 201308
  2. SOMA [Concomitant]
     Dosage: 300 MG, 3X/DAY

REACTIONS (2)
  - Somnolence [Unknown]
  - Dry mouth [Recovered/Resolved]
